FAERS Safety Report 9059999 (Version 1)
Quarter: 2013Q1

REPORT INFORMATION
  Report Type: Spontaneous
  Country: DE (occurrence: DE)
  Receive Date: 20130212
  Receipt Date: 20130212
  Transmission Date: 20140127
  Serious: Yes (Hospitalization)
  Sender: FDA-Public Use
  Company Number: DE-ELI_LILLY_AND_COMPANY-DE201208006646

PATIENT
  Sex: Female

DRUGS (3)
  1. FORSTEO [Suspect]
     Indication: OSTEOPOROSIS
     Dosage: UNK, QD
     Route: 058
     Dates: start: 20120727
  2. CALCIUM [Concomitant]
  3. VITAMIN D NOS [Concomitant]

REACTIONS (4)
  - Fracture nonunion [Not Recovered/Not Resolved]
  - Alopecia [Not Recovered/Not Resolved]
  - Injection site pain [Not Recovered/Not Resolved]
  - Nausea [Recovered/Resolved]
